FAERS Safety Report 18438113 (Version 4)
Quarter: 2021Q3

REPORT INFORMATION
  Report Type: Spontaneous
  Country: US (occurrence: US)
  Receive Date: 20201029
  Receipt Date: 20210823
  Transmission Date: 20211014
  Serious: No
  Sender: FDA-Public Use
  Company Number: US-AKCEA THERAPEUTICS-2020IS001482

PATIENT
  Age: 75 Year
  Sex: Male

DRUGS (11)
  1. TAMSULOSIN HCL [Concomitant]
     Active Substance: TAMSULOSIN HYDROCHLORIDE
     Route: 065
  2. LASIX [Concomitant]
     Active Substance: FUROSEMIDE
     Route: 065
  3. TEGSEDI [Suspect]
     Active Substance: INOTERSEN SODIUM
     Indication: HEREDITARY NEUROPATHIC AMYLOIDOSIS
     Route: 058
  4. ASPIRIN 81 [Concomitant]
     Active Substance: ASPIRIN
     Route: 048
  5. XALATAN [Concomitant]
     Active Substance: LATANOPROST
     Route: 065
  6. OMEPRAZOLE. [Concomitant]
     Active Substance: OMEPRAZOLE
     Route: 065
  7. TEGSEDI [Suspect]
     Active Substance: INOTERSEN SODIUM
     Route: 058
  8. CYMBALTA [Concomitant]
     Active Substance: DULOXETINE HYDROCHLORIDE
     Route: 065
  9. ALLOPURINOL. [Concomitant]
     Active Substance: ALLOPURINOL
     Route: 065
  10. ISSD (INTEGRATED SYRINGE SAFETY DEVICE) [Suspect]
     Active Substance: DEVICE
  11. TEGSEDI [Suspect]
     Active Substance: INOTERSEN SODIUM
     Route: 058
     Dates: end: 202106

REACTIONS (16)
  - Nitrite urine present [Recovered/Resolved]
  - Renal function test abnormal [Recovered/Resolved]
  - Urine protein/creatinine ratio increased [Recovered/Resolved]
  - Injection site rash [Unknown]
  - Blood creatinine increased [Recovered/Resolved]
  - White blood cells urine positive [Recovered/Resolved]
  - Bacterial test positive [Recovered/Resolved]
  - Aspartate aminotransferase abnormal [Recovered/Resolved]
  - Urine abnormality [Recovered/Resolved]
  - Glomerular filtration rate decreased [Recovered/Resolved]
  - Urinary casts [Recovered/Resolved]
  - Laboratory test abnormal [Recovered/Resolved]
  - Protein urine present [Recovered/Resolved]
  - Platelet count decreased [Recovered/Resolved]
  - Alanine aminotransferase abnormal [Recovered/Resolved]
  - Red blood cells urine positive [Recovered/Resolved]

NARRATIVE: CASE EVENT DATE: 202010
